FAERS Safety Report 8353625-5 (Version None)
Quarter: 2012Q2

REPORT INFORMATION
  Report Type: 
  Country: None (occurrence: None)
  Receive Date: 20120511
  Receipt Date: 20110822
  Transmission Date: 20120825
  Serious: No
  Sender: FDA-Public Use
  Company Number: US-GLAXOSMITHKLINE-A0941872A

PATIENT
  Age: 64 Year
  Sex: Female

DRUGS (3)
  1. HERCEPTIN [Concomitant]
     Dates: start: 20060101
  2. COUMADIN [Concomitant]
  3. TYKERB [Suspect]
     Indication: BREAST CANCER
     Dosage: 750MG PER DAY
     Route: 048
     Dates: start: 20110801, end: 20110804

REACTIONS (5)
  - ASTHENIA [None]
  - VOMITING [None]
  - DECREASED APPETITE [None]
  - MALAISE [None]
  - CONDITION AGGRAVATED [None]
